FAERS Safety Report 12519866 (Version 2)
Quarter: 2019Q2

REPORT INFORMATION
  Report Type: Spontaneous
  Country: US (occurrence: US)
  Receive Date: 20160630
  Receipt Date: 20190411
  Transmission Date: 20190711
  Serious: Yes (Hospitalization)
  Sender: FDA-Public Use
  Company Number: US-SA-2016SA117706

PATIENT
  Age: 73 Year
  Sex: Female

DRUGS (1)
  1. LANTUS SOLOSTAR [Suspect]
     Active Substance: INSULIN GLARGINE
     Indication: TYPE 2 DIABETES MELLITUS
     Dosage: UNK UNK,QD
     Route: 065

REACTIONS (5)
  - Blood glucose decreased [Unknown]
  - Bedridden [Unknown]
  - Pyrexia [Unknown]
  - Ammonia increased [Unknown]
  - Product storage error [Unknown]
